FAERS Safety Report 17798019 (Version 1)
Quarter: 2020Q2

REPORT INFORMATION
  Report Type: Report from Study
  Country: None (occurrence: US)
  Receive Date: 20200518
  Receipt Date: 20200518
  Transmission Date: 20200714
  Serious: Yes (Other)
  Sender: FDA-Public Use
  Company Number: US-ABBVIE-20K-163-3403759-00

PATIENT
  Age: 89 Year
  Sex: Male

DRUGS (2)
  1. VENCLEXTA [Suspect]
     Active Substance: VENETOCLAX
     Indication: HAEMOLYTIC ANAEMIA
     Dosage: STARTING PACK
     Route: 048
     Dates: start: 20200429
  2. VENCLEXTA [Suspect]
     Active Substance: VENETOCLAX
     Indication: CHRONIC LYMPHOCYTIC LEUKAEMIA

REACTIONS (4)
  - Photosensitivity reaction [Unknown]
  - Erythema [Unknown]
  - Transfusion [Unknown]
  - Pruritus [Unknown]

NARRATIVE: CASE EVENT DATE: 2020
